FAERS Safety Report 20079838 (Version 2)
Quarter: 2021Q4

REPORT INFORMATION
  Report Type: Spontaneous
  Country: BA (occurrence: BA)
  Receive Date: 20211117
  Receipt Date: 20211129
  Transmission Date: 20220303
  Serious: Yes (Death, Other)
  Sender: FDA-Public Use
  Company Number: BA-009507513-2111BIH003896

PATIENT
  Age: 67 Year
  Sex: Female

DRUGS (4)
  1. KEYTRUDA [Suspect]
     Active Substance: PEMBROLIZUMAB
     Dosage: 200 MG; THE FIRST APPLICATION WAS ALSO THE LAST
     Dates: start: 20201005, end: 20201005
  2. NEBIVOLOL [Concomitant]
     Active Substance: NEBIVOLOL
     Dosage: UNK
     Route: 048
  3. ROSIX [ROSUVASTATIN CALCIUM] [Concomitant]
     Dosage: UNK
     Route: 048
  4. FERROUS FUMARATE [Concomitant]
     Active Substance: FERROUS FUMARATE
     Dosage: UNK
     Route: 048

REACTIONS (7)
  - Death [Fatal]
  - Osmotic demyelination syndrome [Unknown]
  - Confusional state [Unknown]
  - Aggression [Unknown]
  - Dysphagia [Unknown]
  - Urinary incontinence [Unknown]
  - Anal sphincter atony [Unknown]

NARRATIVE: CASE EVENT DATE: 20201108
